FAERS Safety Report 8187008 (Version 4)
Quarter: 2013Q1

REPORT INFORMATION
  Report Type: Spontaneous
  Country: BE (occurrence: BE)
  Receive Date: 20111018
  Receipt Date: 20130121
  Transmission Date: 20140127
  Serious: Yes (Hospitalization, Other)
  Sender: FDA-Public Use
  Company Number: BE-ABBOTT-11P-013-0863944-00

PATIENT
  Age: 34 None
  Sex: Female
  Weight: 40 kg

DRUGS (3)
  1. UTROGESTAN [Suspect]
     Indication: LUTEAL PHASE DEFICIENCY
     Route: 067
     Dates: start: 201104, end: 201106
  2. UTROGESTAN [Suspect]
     Route: 067
     Dates: start: 201106
  3. UTROGESTAN [Suspect]
     Route: 067
     Dates: start: 201109

REACTIONS (9)
  - Eclampsia [Recovered/Resolved]
  - Headache [Unknown]
  - Uterine hypertonus [Recovered/Resolved]
  - Drug ineffective [Unknown]
  - Back pain [Recovered/Resolved]
  - Escherichia infection [Unknown]
  - Abdominal pain [Recovered/Resolved]
  - Premature separation of placenta [Recovered/Resolved]
  - Expired drug administered [Unknown]
